FAERS Safety Report 19718436 (Version 2)
Quarter: 2021Q3

REPORT INFORMATION
  Report Type: Spontaneous
  Country: GR (occurrence: GR)
  Receive Date: 20210818
  Receipt Date: 20210901
  Transmission Date: 20211014
  Serious: Yes (Other)
  Sender: FDA-Public Use
  Company Number: GR-SAMSUNG BIOEPIS-SB-2021-19563

PATIENT
  Age: 45 Year
  Sex: Female

DRUGS (10)
  1. TRASTUZUMAB. [Suspect]
     Active Substance: TRASTUZUMAB
     Indication: METASTASES TO LIVER
  2. EPIRUBICIN [Concomitant]
     Active Substance: EPIRUBICIN
     Indication: TRIPLE NEGATIVE BREAST CANCER
     Dosage: UNKNOWN, FOUR CYCLES
     Route: 065
  3. TRASTUZUMAB. [Suspect]
     Active Substance: TRASTUZUMAB
     Indication: HER2 POSITIVE BREAST CANCER
     Dosage: UNKNOWN
     Route: 065
  4. PERTUZUMAB. [Suspect]
     Active Substance: PERTUZUMAB
     Indication: TRIPLE NEGATIVE BREAST CANCER
  5. TRASTUZUMAB. [Suspect]
     Active Substance: TRASTUZUMAB
     Indication: TRIPLE NEGATIVE BREAST CANCER
  6. DOCETAXEL. [Concomitant]
     Active Substance: DOCETAXEL
     Indication: TRIPLE NEGATIVE BREAST CANCER
     Dosage: UNKNOWN, FOUR CYCLES AND THEN SIX CYCLES
     Route: 065
  7. CYCLOPHOSPHAMIDE. [Concomitant]
     Active Substance: CYCLOPHOSPHAMIDE
     Indication: TRIPLE NEGATIVE BREAST CANCER
     Dosage: UNKNOWN, FOUR CYCLES
     Route: 065
  8. PERTUZUMAB. [Suspect]
     Active Substance: PERTUZUMAB
     Indication: HER2 POSITIVE BREAST CANCER
     Dosage: UNKNOWN
     Route: 065
  9. PERTUZUMAB. [Suspect]
     Active Substance: PERTUZUMAB
     Indication: METASTASES TO LIVER
  10. DOCETAXEL. [Concomitant]
     Active Substance: DOCETAXEL
     Indication: METASTASES TO LIVER

REACTIONS (2)
  - Off label use [Unknown]
  - Sarcoid-like reaction [Unknown]
